FAERS Safety Report 7281112-4 (Version None)
Quarter: 2011Q1

REPORT INFORMATION
  Report Type: 
  Country: None (occurrence: None)
  Receive Date: 20110131
  Receipt Date: 20110119
  Transmission Date: 20110831
  Serious: Yes (Hospitalization, Other)
  Sender: FDA-Public Use
  Company Number: 2009S1002365

PATIENT
  Age: 62 Year
  Sex: Female
  Weight: 84.8226 kg

DRUGS (13)
  1. LORAZEPAM [Concomitant]
  2. ZELNORM [Concomitant]
  3. LEVSIN SL [Concomitant]
  4. PHOSPHOSODA FLAVOR NOT SPECIFIED [Suspect]
     Indication: COLONOSCOPY
     Dosage: 90 ML, TOTAL, PO
     Route: 048
     Dates: start: 20061119, end: 20061119
  5. AMBIEN CR [Concomitant]
  6. TRIAMETERENE/HCTZ [Concomitant]
  7. DONNATAL [Concomitant]
  8. NAPROSYN [Concomitant]
  9. SYNTHROID [Concomitant]
  10. LIPITOR [Concomitant]
  11. LOTREL [Concomitant]
  12. WELLBUTRIN XL [Concomitant]
  13. BACTRIM DS [Concomitant]

REACTIONS (30)
  - ASTHENIA [None]
  - MALAISE [None]
  - DIAPHRAGMATIC HERNIA [None]
  - CHOLELITHIASIS [None]
  - TREMOR [None]
  - HYPOVOLAEMIA [None]
  - MUSCLE SPASMS [None]
  - ANAEMIA [None]
  - NAUSEA [None]
  - RENAL FAILURE CHRONIC [None]
  - ACUTE PRERENAL FAILURE [None]
  - DEHYDRATION [None]
  - DEPRESSION [None]
  - MYALGIA [None]
  - DIZZINESS [None]
  - PAIN [None]
  - FATIGUE [None]
  - HAEMORRHOIDS [None]
  - PEPTIC ULCER [None]
  - HYPERTENSION [None]
  - DECREASED APPETITE [None]
  - RENAL FAILURE ACUTE [None]
  - GASTRODUODENITIS [None]
  - BLOOD POTASSIUM DECREASED [None]
  - WEIGHT DECREASED [None]
  - VOMITING [None]
  - ANXIETY [None]
  - GASTRITIS [None]
  - MELAENA [None]
  - HYPOPHAGIA [None]
